FAERS Safety Report 11857769 (Version 1)
Quarter: 2015Q4

REPORT INFORMATION
  Report Type: Spontaneous
  Country: US (occurrence: None)
  Receive Date: 20151221
  Receipt Date: 20151221
  Transmission Date: 20160305
  Serious: No
  Sender: FDA-Public Use
  Company Number: None

PATIENT
  Age: 60 Year
  Sex: Female
  Weight: 90.72 kg

DRUGS (6)
  1. WOMAN^S SILVER ONE A DAY [Concomitant]
  2. CLARATIN [Concomitant]
  3. CALCIUM [Concomitant]
     Active Substance: CALCIUM
  4. ASPIRIN. [Concomitant]
     Active Substance: ASPIRIN
  5. SERTRALINE [Concomitant]
     Active Substance: SERTRALINE HYDROCHLORIDE
  6. SUBOXONE [Suspect]
     Active Substance: BUPRENORPHINE HYDROCHLORIDE\NALOXONE HYDROCHLORIDE
     Indication: PAIN
     Route: 060

REACTIONS (3)
  - Stomatitis [None]
  - Dry mouth [None]
  - Oral pain [None]
